FAERS Safety Report 6093880-8 (Version None)
Quarter: 2009Q1

REPORT INFORMATION
  Report Type: 
  Country: None (occurrence: None)
  Receive Date: 20090224
  Receipt Date: 20090224
  Transmission Date: 20090719
  Serious: Yes (Other)
  Sender: FDA-Public Use
  Company Number: None

PATIENT
  Age: 56 Year
  Sex: Male
  Weight: 127.0072 kg

DRUGS (1)
  1. SEPTRA [Suspect]
     Indication: EAR PAIN
     Dates: start: 20081111, end: 20081117

REACTIONS (4)
  - DRUG HYPERSENSITIVITY [None]
  - HAEMORRHAGE [None]
  - PAIN OF SKIN [None]
  - PARAESTHESIA [None]
